FAERS Safety Report 9992378 (Version 3)
Quarter: 2014Q1

REPORT INFORMATION
  Report Type: Spontaneous
  Country: US (occurrence: US)
  Receive Date: 20140310
  Receipt Date: 20140327
  Transmission Date: 20141002
  Serious: Yes (Other)
  Sender: FDA-Public Use
  Company Number: US-PFIZER INC-2014067319

PATIENT
  Age: 23 Year
  Sex: Male

DRUGS (2)
  1. EFFEXOR [Suspect]
     Indication: DEPRESSION
     Dosage: UNK
  2. EFFEXOR [Suspect]
     Indication: ANXIETY

REACTIONS (1)
  - Convulsion [Unknown]
